FAERS Safety Report 4537394-2 (Version None)
Quarter: 2004Q4

REPORT INFORMATION
  Report Type: 
  Country: None (occurrence: None)
  Receive Date: 20041223
  Receipt Date: 20041213
  Transmission Date: 20050328
  Serious: Yes (Hospitalization)
  Sender: FDA-Public Use
  Company Number: SE-ABBOTT-04P-150-0283844-00

PATIENT
  Age: 24 Month
  Sex: Female

DRUGS (4)
  1. ERGENYL SOLUTION [Suspect]
     Indication: EPILEPSY
     Route: 048
     Dates: start: 20020601, end: 20040101
  2. KETOGENIC DIET [Suspect]
     Indication: DRUG EFFECT DECREASED
     Route: 048
     Dates: start: 20030301
  3. CLOBAZAM [Concomitant]
     Indication: DRUG USE FOR UNKNOWN INDICATION
  4. PHENYTOIN [Concomitant]
     Indication: DRUG USE FOR UNKNOWN INDICATION
     Route: 048

REACTIONS (15)
  - ANAEMIA MACROCYTIC [None]
  - DRUG EFFECT DECREASED [None]
  - FATIGUE [None]
  - GAMMA-GLUTAMYLTRANSFERASE INCREASED [None]
  - GENERAL PHYSICAL HEALTH DETERIORATION [None]
  - GLUCOSE URINE [None]
  - HYPERCHLORAEMIA [None]
  - HYPOALBUMINAEMIA [None]
  - HYPOPHOSPHATAEMIA [None]
  - METABOLIC ACIDOSIS [None]
  - PH URINE DECREASED [None]
  - THROMBOCYTOPENIA [None]
  - TRANSAMINASES INCREASED [None]
  - URINE ANALYSIS ABNORMAL [None]
  - URINE KETONE BODY PRESENT [None]
